FAERS Safety Report 26182136 (Version 1)
Quarter: 2025Q4

REPORT INFORMATION
  Report Type: Spontaneous
  Country: EU (occurrence: EU)
  Receive Date: 20251221
  Receipt Date: 20251221
  Transmission Date: 20260118
  Serious: Yes (Hospitalization)
  Sender: ELI LILLY AND COMPANY
  Company Number: None

PATIENT
  Age: 19 Year
  Sex: Female

DRUGS (2)
  1. FLUOXETINE HYDROCHLORIDE [Suspect]
     Active Substance: FLUOXETINE HYDROCHLORIDE
     Indication: Depression
     Dosage: 140 MG, OTHER (FLUOXETINE 20 MG, 7 TABLETS TAKEN)
     Route: 048
     Dates: start: 20240222, end: 20240222
  2. ACETAMINOPHEN [Suspect]
     Active Substance: ACETAMINOPHEN
     Indication: Analgesic therapy
     Dosage: 10000 MG, OTHER (PARACETAMOL 500 MG, 20 TABLETS TAKEN)
     Route: 048
     Dates: start: 20240222, end: 20240229

REACTIONS (5)
  - Drug abuse [Recovered/Resolved]
  - Drug abuse [Recovered/Resolved]
  - Vertigo [Recovered/Resolved]
  - Nausea [Recovered/Resolved]
  - Vomiting [Recovered/Resolved]

NARRATIVE: CASE EVENT DATE: 20240222
